FAERS Safety Report 4462539-2 (Version None)
Quarter: 2004Q3

REPORT INFORMATION
  Report Type: 
  Country: None (occurrence: None)
  Receive Date: 20040924
  Receipt Date: 20040917
  Transmission Date: 20050211
  Serious: Yes (Death, Hospitalization, Other)
  Sender: FDA-Public Use
  Company Number: FR-JNJFOC-20040905980

PATIENT
  Age: 21 Year
  Sex: Female

DRUGS (1)
  1. ACETAMINOPHEN [Suspect]
     Dosage: 16 G, 1 IN 1 TOTAL

REACTIONS (15)
  - ASTERIXIS [None]
  - BRAIN DEATH [None]
  - COAGULATION FACTOR V LEVEL DECREASED [None]
  - CONFUSIONAL STATE [None]
  - DRUG TOXICITY [None]
  - ELECTROENCEPHALOGRAM ABNORMAL [None]
  - HEPATIC FAILURE [None]
  - HYPERTENSION [None]
  - LIVER TRANSPLANT [None]
  - MYDRIASIS [None]
  - OLIGURIA [None]
  - OVERDOSE [None]
  - RENAL IMPAIRMENT [None]
  - SOMNOLENCE [None]
  - TACHYCARDIA [None]
